FAERS Safety Report 7749134-4 (Version None)
Quarter: 2011Q3

REPORT INFORMATION
  Report Type: 
  Country: None (occurrence: None)
  Receive Date: 20110909
  Receipt Date: 20110825
  Transmission Date: 20111222
  Serious: Yes (Other)
  Sender: FDA-Public Use
  Company Number: TPA2011A04504

PATIENT
  Age: 73 Year
  Sex: Female

DRUGS (11)
  1. LASIX [Concomitant]
  2. NICORANTA (NICORANDIL) [Concomitant]
  3. KAMAG (MAGNESIUM OXIDE) [Concomitant]
  4. ARTIST (CARVEDILOL) [Concomitant]
  5. ASPIRIN [Concomitant]
  6. SPIRONOLACTONE [Concomitant]
  7. ZETIA [Concomitant]
  8. FEBURIC (FEBUXOSTAT) [Suspect]
     Indication: HYPERURICAEMIA
     Dosage: 10 MG (10 MG, 1 IN 1 D), ORAL;20 MG (20 MG, 1 IN 1 D), ORAL
     Route: 048
     Dates: start: 20110614, end: 20110628
  9. FEBURIC (FEBUXOSTAT) [Suspect]
     Indication: HYPERURICAEMIA
     Dosage: 10 MG (10 MG, 1 IN 1 D), ORAL;20 MG (20 MG, 1 IN 1 D), ORAL
     Route: 048
     Dates: start: 20110628, end: 20110714
  10. JANUVIA [Concomitant]
  11. PLAVIX [Concomitant]

REACTIONS (1)
  - BLOOD URIC ACID DECREASED [None]
